FAERS Safety Report 5729464-8 (Version None)
Quarter: 2008Q2

REPORT INFORMATION
  Report Type: 
  Country: None (occurrence: None)
  Receive Date: 20080506
  Receipt Date: 20080425
  Transmission Date: 20081010
  Serious: Yes (Hospitalization)
  Sender: FDA-Public Use
  Company Number: TR-AMGEN-US199988

PATIENT
  Age: 30 Year
  Sex: Male

DRUGS (3)
  1. ENBREL [Suspect]
     Indication: PSORIATIC ARTHROPATHY
     Route: 058
     Dates: start: 20060524
  2. ISONIAZID [Concomitant]
     Indication: PROPHYLAXIS
     Dosage: 100 MG 1X3
     Route: 048
     Dates: start: 20060324
  3. PREDNISONE [Concomitant]
     Indication: PSORIATIC ARTHROPATHY
     Dosage: 16 MG 1X1
     Route: 048

REACTIONS (8)
  - ARTHRITIS [None]
  - CONDITION AGGRAVATED [None]
  - HAEMOGLOBIN DECREASED [None]
  - MYIASIS [None]
  - NAIL DYSTROPHY [None]
  - PSORIATIC ARTHROPATHY [None]
  - SKIN MACERATION [None]
  - WHITE BLOOD CELL COUNT DECREASED [None]
